FAERS Safety Report 7588422-1 (Version None)
Quarter: 2011Q2

REPORT INFORMATION
  Report Type: 
  Country: None (occurrence: None)
  Receive Date: 20110627
  Receipt Date: 20110613
  Transmission Date: 20111010
  Serious: Yes (Hospitalization)
  Sender: FDA-Public Use
  Company Number: 1000021599

PATIENT
  Age: 40 Year
  Sex: Female

DRUGS (2)
  1. PROPRANOLOL HYDROCHLORIDE [Suspect]
     Indication: SINUS TACHYCARDIA
  2. VANCOMYCIN [Concomitant]

REACTIONS (2)
  - PERICARDITIS [None]
  - THYROTOXIC CRISIS [None]
